FAERS Safety Report 4815758-7 (Version None)
Quarter: 2005Q4

REPORT INFORMATION
  Report Type: 
  Country: None (occurrence: None)
  Receive Date: 20051031
  Receipt Date: 20051019
  Transmission Date: 20060501
  Serious: Yes (Other)
  Sender: FDA-Public Use
  Company Number: US-BRISTOL-MYERS SQUIBB COMPANY-13150321

PATIENT
  Age: 19 Year
  Sex: Male

DRUGS (1)
  1. ABILIFY [Suspect]
     Route: 048

REACTIONS (3)
  - BUNDLE BRANCH BLOCK [None]
  - CHEST PAIN [None]
  - MITRAL VALVE INCOMPETENCE [None]
